FAERS Safety Report 16752384 (Version 1)
Quarter: 2019Q3

REPORT INFORMATION
  Report Type: Spontaneous
  Country: DE (occurrence: DE)
  Receive Date: 20190828
  Receipt Date: 20190828
  Transmission Date: 20191005
  Serious: Yes (Hospitalization)
  Sender: FDA-Public Use
  Company Number: DE-ANIPHARMA-2019-DE-000115

PATIENT
  Sex: Female

DRUGS (1)
  1. ARIMIDEX [Suspect]
     Active Substance: ANASTROZOLE
     Indication: BREAST CANCER
     Dosage: 1 MG DAILY
     Route: 048

REACTIONS (7)
  - Renal failure [Unknown]
  - Liver function test abnormal [Unknown]
  - Dysgeusia [Unknown]
  - Musculoskeletal discomfort [Unknown]
  - Diarrhoea [Unknown]
  - Haematochezia [Unknown]
  - Myalgia [Unknown]
